FAERS Safety Report 23553784 (Version 1)
Quarter: 2024Q1

REPORT INFORMATION
  Report Type: Spontaneous
  Country: IT (occurrence: IT)
  Receive Date: 20240222
  Receipt Date: 20240222
  Transmission Date: 20240410
  Serious: Yes (Other)
  Sender: FDA-Public Use
  Company Number: None

PATIENT
  Sex: Female

DRUGS (2)
  1. FLUOROURACIL [Suspect]
     Active Substance: FLUOROURACIL
     Indication: Colon cancer
     Dosage: 9TH CYCLE/1ST-2ND DAY TEVA FLUOROURACIL* 5G 100ML; IN BOLUS 600 MG IV, IN ELASTOMERIC PUMP 1,500 ...
     Route: 042
     Dates: start: 20230807
  2. OXALIPLATIN [Suspect]
     Active Substance: OXALIPLATIN
     Indication: Colon cancer
     Dosage: 9TH CYCLE/2ND DAY OXALIPLATIN TEVA* 200MG 40ML ADMINISTERED AT A DOSAGE OF 120 MG I.V. (ON THE SE...
     Route: 042
     Dates: start: 20230808

REACTIONS (1)
  - Neutropenia [Not Recovered/Not Resolved]

NARRATIVE: CASE EVENT DATE: 20231220
